FAERS Safety Report 6566877-9 (Version None)
Quarter: 2010Q1

REPORT INFORMATION
  Report Type: 
  Country: None (occurrence: None)
  Receive Date: 20100202
  Receipt Date: 20100126
  Transmission Date: 20100710
  Serious: Yes (Other)
  Sender: FDA-Public Use
  Company Number: B0630277A

PATIENT
  Age: 56 Year
  Sex: Female

DRUGS (3)
  1. WELLBUTRIN [Suspect]
     Indication: DEPRESSION
     Dosage: 225MG PER DAY
     Route: 048
     Dates: start: 20060101
  2. TRAZODONE [Concomitant]
  3. LEXOTAN [Concomitant]

REACTIONS (1)
  - RETINITIS PIGMENTOSA [None]
